FAERS Safety Report 18423798 (Version 5)
Quarter: 2020Q4

REPORT INFORMATION
  Report Type: Report from Study
  Country: US (occurrence: US)
  Receive Date: 20201024
  Receipt Date: 20201221
  Transmission Date: 20210114
  Serious: Yes (Death, Life-Threatening, Hospitalization, Other)
  Sender: FDA-Public Use
  Company Number: US-AMGEN-USACT2020172017

PATIENT
  Age: 71 Year
  Sex: Male
  Weight: 86.2 kg

DRUGS (24)
  1. ACETAMINOPHEN. [Concomitant]
     Active Substance: ACETAMINOPHEN
  2. SIMVASTATIN. [Concomitant]
     Active Substance: SIMVASTATIN
  3. BETAMETHASONE. [Concomitant]
     Active Substance: BETAMETHASONE
  4. ENOXAPARIN [Concomitant]
     Active Substance: ENOXAPARIN
  5. HYDROMORPHONE [Concomitant]
     Active Substance: HYDROMORPHONE
  6. TALIMOGENE LAHERPAREPVEC [Suspect]
     Active Substance: TALIMOGENE LAHERPAREPVEC
     Dosage: 10^8 PFU/ML ON DAY: 01 (CYCLE 02), Q2WK
     Route: 036
     Dates: end: 20200924
  7. NIVOLUMAB [Suspect]
     Active Substance: NIVOLUMAB
     Indication: SQUAMOUS CELL CARCINOMA OF SKIN
     Dosage: 3 MILLIGRAM/KILOGRAM
     Route: 042
     Dates: start: 20200902, end: 20200924
  8. LACTULOSE. [Concomitant]
     Active Substance: LACTULOSE
  9. METRONIDAZOLE. [Concomitant]
     Active Substance: METRONIDAZOLE
  10. FISH OIL [Concomitant]
     Active Substance: FISH OIL
  11. ONDANSETRON [Concomitant]
     Active Substance: ONDANSETRON
  12. OXYCODONE [Concomitant]
     Active Substance: OXYCODONE
  13. LIDOCAINE. [Concomitant]
     Active Substance: LIDOCAINE
  14. MORPHINE [Concomitant]
     Active Substance: MORPHINE
  15. SENNA [Concomitant]
     Active Substance: SENNA LEAF\SENNOSIDES\SENNOSIDES A AND B
  16. HYPOCHLOROUS ACID;SODIUM CHLORIDE [Concomitant]
  17. VITAMIN C ACID [Concomitant]
     Active Substance: ASCORBIC ACID
     Dosage: UNK
  18. LIDOCAINE PRILOCAINE BIOGARAN [Concomitant]
  19. POLYETHYLENE GLYCOL [MACROGOL] [Concomitant]
     Active Substance: POLYETHYLENE GLYCOLS
  20. TALIMOGENE LAHERPAREPVEC [Suspect]
     Active Substance: TALIMOGENE LAHERPAREPVEC
     Indication: SQUAMOUS CELL CARCINOMA OF SKIN
     Dosage: 10^6 PFU/ML ON DAY: 01 (CYCLE 01), Q3WK
     Route: 036
     Dates: start: 20200902
  21. GABAPENTIN. [Concomitant]
     Active Substance: GABAPENTIN
  22. METHADONE [Concomitant]
     Active Substance: METHADONE HYDROCHLORIDE
  23. TADALAFIL. [Concomitant]
     Active Substance: TADALAFIL
  24. ESOMEPRAZOLE. [Concomitant]
     Active Substance: ESOMEPRAZOLE MAGNESIUM

REACTIONS (5)
  - Sepsis [Recovered/Resolved]
  - Herpes virus infection [Not Recovered/Not Resolved]
  - Death [Fatal]
  - Rash vesicular [Unknown]
  - Confusional state [Not Recovered/Not Resolved]

NARRATIVE: CASE EVENT DATE: 202009
